FAERS Safety Report 17671308 (Version 1)
Quarter: 2020Q2

REPORT INFORMATION
  Report Type: Spontaneous
  Country: FR (occurrence: FR)
  Receive Date: 20200415
  Receipt Date: 20200415
  Transmission Date: 20200713
  Serious: Yes (Death, Life-Threatening)
  Sender: FDA-Public Use
  Company Number: FR-MYLANLABS-2020M1037977

PATIENT
  Age: 62 Year
  Sex: Male
  Weight: 92 kg

DRUGS (8)
  1. DIPRIVAN [Concomitant]
     Active Substance: PROPOFOL
     Indication: PRODUCT USED FOR UNKNOWN INDICATION
     Dosage: UNK
  2. HYPNOVEL                           /00634101/ [Concomitant]
     Active Substance: MIDAZOLAM HYDROCHLORIDE
     Dosage: UNK
  3. VIMPAT [Suspect]
     Active Substance: LACOSAMIDE
     Dosage: 400 MILLIGRAM, QD
     Route: 042
     Dates: start: 20200309, end: 20200314
  4. GARDENAL                           /00023201/ [Suspect]
     Active Substance: PHENOBARBITAL
     Indication: STATUS EPILEPTICUS
     Dosage: 400 MILLIGRAM, QD
     Route: 042
     Dates: start: 20200309, end: 20200314
  5. GARDENAL                           /00023201/ [Suspect]
     Active Substance: PHENOBARBITAL
     Dosage: 150 MILLIGRAM, QD
     Route: 042
     Dates: start: 20200309, end: 20200314
  6. VIMPAT [Suspect]
     Active Substance: LACOSAMIDE
     Indication: STATUS EPILEPTICUS
     Dosage: 400 MILLIGRAM, QD
     Route: 042
     Dates: start: 20200309, end: 20200314
  7. VALPROATE DE SODIUM AGUETTANT [Suspect]
     Active Substance: VALPROATE SODIUM
     Indication: STATUS EPILEPTICUS
     Dosage: 1000 MILLIGRAM, QD
     Route: 042
     Dates: start: 20200309, end: 20200314
  8. LEVETIRACETAM MYLAN 100 MG/ML, SOLUTION ? DILUER POUR PERFUSION [Suspect]
     Active Substance: LEVETIRACETAM
     Indication: STATUS EPILEPTICUS
     Dosage: 4 GRAM, QD
     Route: 042
     Dates: start: 20200309, end: 20200314

REACTIONS (2)
  - Acute kidney injury [Fatal]
  - Hyperammonaemia [Fatal]

NARRATIVE: CASE EVENT DATE: 20200312
